FAERS Safety Report 4789328-3 (Version None)
Quarter: 2005Q3

REPORT INFORMATION
  Report Type: 
  Country: None (occurrence: None)
  Receive Date: 20050929
  Receipt Date: 20050809
  Transmission Date: 20060218
  Serious: No
  Sender: FDA-Public Use
  Company Number: 05P-163-0307864

PATIENT
  Age: 74 Year
  Sex: Female

DRUGS (3)
  1. HUMIRA                    (ADALIMUMAB) [Suspect]
     Indication: RHEUMATOID ARTHRITIS
     Dosage: 40 MG, 1 IN  2 WK, SUBCUTANEOUS
     Route: 058
     Dates: start: 20040401, end: 20050601
  2. METHOTREXATE [Concomitant]
  3. ETODOLAC [Concomitant]

REACTIONS (1)
  - EAR LOBE INFECTION [None]
